FAERS Safety Report 4602231-4 (Version None)
Quarter: 2005Q1

REPORT INFORMATION
  Report Type: 
  Country: None (occurrence: None)
  Receive Date: 20050201
  Receipt Date: 20040831
  Transmission Date: 20050727
  Serious: Yes (Life-Threatening)
  Sender: FDA-Public Use
  Company Number: 200420438BWH

PATIENT
  Sex: Female

DRUGS (2)
  1. AVELOX [Suspect]
     Indication: UPPER RESPIRATORY TRACT INFECTION
     Dosage: 200 MG, TOTAL DAILY, ORAL
     Route: 048
     Dates: start: 20030701
  2. PREMARIN [Concomitant]

REACTIONS (11)
  - ABDOMINAL PAIN [None]
  - ANAPHYLACTIC REACTION [None]
  - BLOOD PRESSURE DECREASED [None]
  - DYSPNOEA [None]
  - ERYTHEMA [None]
  - FEELING HOT [None]
  - FLUSHING [None]
  - GENERALISED ERYTHEMA [None]
  - PARAESTHESIA [None]
  - SOMNOLENCE [None]
  - URTICARIA [None]
